FAERS Safety Report 7880079-5 (Version None)
Quarter: 2011Q4

REPORT INFORMATION
  Report Type: 
  Country: None (occurrence: None)
  Receive Date: 20111101
  Receipt Date: 20111021
  Transmission Date: 20120403
  Serious: Yes (Hospitalization, Other)
  Sender: FDA-Public Use
  Company Number: US-BAYER-2011-034307

PATIENT
  Age: 38 Year
  Sex: Female
  Weight: 81 kg

DRUGS (6)
  1. YAZ [Suspect]
  2. LUNESTA [Concomitant]
     Indication: SLEEP DISORDER
     Dosage: 3 MG, UNK
     Route: 048
     Dates: start: 20060401
  3. IBUPROFEN [Concomitant]
     Indication: MYALGIA
     Dosage: UNK
     Route: 048
     Dates: start: 19860101
  4. IBUPROFEN [Concomitant]
     Indication: HEADACHE
  5. YAZ [Suspect]
     Indication: PREMENSTRUAL SYNDROME
     Dosage: UNK
     Dates: start: 20060601, end: 20060701
  6. CELEXA [Concomitant]
     Dosage: 40 UNK, UNK
     Route: 048

REACTIONS (6)
  - CHEST PAIN [None]
  - MENTAL DISORDER [None]
  - PULMONARY EMBOLISM [None]
  - PAIN [None]
  - EMOTIONAL DISTRESS [None]
  - INJURY [None]
